FAERS Safety Report 20640988 (Version 2)
Quarter: 2022Q2

REPORT INFORMATION
  Report Type: Spontaneous
  Country: FR (occurrence: FR)
  Receive Date: 20220327
  Receipt Date: 20220404
  Transmission Date: 20220721
  Serious: Yes (Disabling)
  Sender: FDA-Public Use
  Company Number: FR-TEVA-2022-FR-2020602

PATIENT
  Age: 83 Year
  Sex: Male

DRUGS (2)
  1. ALBUTEROL SULFATE [Suspect]
     Active Substance: ALBUTEROL SULFATE
     Indication: Dyspnoea
     Dosage: 100 MG/DOSE
  2. SPIRIVA [Concomitant]
     Active Substance: TIOTROPIUM BROMIDE MONOHYDRATE

REACTIONS (4)
  - Heart rate increased [Recovering/Resolving]
  - Palpitations [Recovering/Resolving]
  - Respiration abnormal [Unknown]
  - Gait inability [Unknown]

NARRATIVE: CASE EVENT DATE: 20220316
